FAERS Safety Report 23739338 (Version 1)
Quarter: 2024Q2

REPORT INFORMATION
  Report Type: Spontaneous
  Country: CN (occurrence: CN)
  Receive Date: 20240413
  Receipt Date: 20240413
  Transmission Date: 20240715
  Serious: Yes (Other)
  Sender: FDA-Public Use
  Company Number: CN-PFIZER INC-PV202400046810

PATIENT
  Age: 89 Year
  Sex: Male
  Weight: 50 kg

DRUGS (2)
  1. AVIBACTAM SODIUM [Suspect]
     Active Substance: AVIBACTAM SODIUM
     Indication: Pneumonia
     Dosage: TIME INTERVAL: 0.33333333 DAYS: 1.25 G, 3X/DAY
     Route: 041
     Dates: start: 20240315, end: 20240320
  2. SODIUM CHLORIDE [Concomitant]
     Active Substance: SODIUM CHLORIDE
     Indication: Vehicle solution use
     Dosage: TIME INTERVAL: 0.33333333 DAYS: 100 ML, 3X/DAY
     Route: 041
     Dates: start: 20240315, end: 20240320

REACTIONS (1)
  - Platelet count decreased [Recovered/Resolved]

NARRATIVE: CASE EVENT DATE: 20240321
